FAERS Safety Report 18952256 (Version 1)
Quarter: 2021Q1

REPORT INFORMATION
  Report Type: Spontaneous
  Country: US (occurrence: US)
  Receive Date: 20210301
  Receipt Date: 20210301
  Transmission Date: 20210420
  Serious: Yes (Death, Hospitalization, Other)
  Sender: FDA-Public Use
  Company Number: US-ALVOGEN-2021-ALVOGEN-116623

PATIENT
  Age: 35 Year
  Sex: Female

DRUGS (2)
  1. CISPLATIN. [Suspect]
     Active Substance: CISPLATIN
     Indication: OSTEOSARCOMA
     Dosage: 3 CYCLES BEFORE?SURGERY AND 3 CYCLES AFTER SURGERY
  2. DOXORUBICIN [Suspect]
     Active Substance: DOXORUBICIN
     Indication: OSTEOSARCOMA
     Dosage: 450 MG/M2, 3 CYCLES BEFORE?SURGERY AND 3 CYCLES AFTER SURGERY

REACTIONS (12)
  - Cardiogenic shock [Fatal]
  - Cardiotoxicity [Fatal]
  - Fatigue [Unknown]
  - Neutropenic infection [Unknown]
  - Hypokalaemia [Unknown]
  - Alopecia [Unknown]
  - Cardiac tamponade [Fatal]
  - Nausea [Unknown]
  - Pericardial effusion [Fatal]
  - Acute respiratory failure [Fatal]
  - Cardiorenal syndrome [Fatal]
  - Dehydration [Unknown]
